FAERS Safety Report 9162103 (Version 2)
Quarter: 2013Q1

REPORT INFORMATION
  Report Type: Spontaneous
  Country: IL (occurrence: None)
  Receive Date: 20130222
  Receipt Date: 20130225
  Transmission Date: 20140127
  Serious: Yes (Other)
  Sender: FDA-Public Use
  Company Number: 2013-0443

PATIENT
  Sex: Female
  Weight: 75 kg

DRUGS (5)
  1. SOMATULINE [Suspect]
     Indication: ACROMEGALY
     Dosage: 60 MG (60 MG, 1 IN 28 D), UNKNOWN
     Dates: start: 20120228
  2. NOVORAPID (INSULIN ASPART) [Concomitant]
  3. LEVEMIR (INSULIN DETEMIR) [Concomitant]
  4. GLUCOPHAGE (METFORMIN) [Concomitant]
  5. ELTROXIN (LEVOTHYROXINE SODIUM) [Concomitant]

REACTIONS (3)
  - Gamma-glutamyltransferase abnormal [None]
  - Aspartate aminotransferase abnormal [None]
  - Alanine aminotransferase abnormal [None]
